FAERS Safety Report 14263363 (Version 3)
Quarter: 2018Q1

REPORT INFORMATION
  Report Type: Report from Study
  Country: CA (occurrence: CA)
  Receive Date: 20171208
  Receipt Date: 20180329
  Transmission Date: 20180508
  Serious: Yes (Other)
  Sender: FDA-Public Use
  Company Number: CA-PFIZER INC-2017524170

PATIENT
  Age: 48 Year
  Sex: Female

DRUGS (5)
  1. IMURAN [Concomitant]
     Active Substance: AZATHIOPRINE
     Dosage: UNK
  2. PANTOLOC [Suspect]
     Active Substance: PANTOPRAZOLE SODIUM
     Dosage: UNK
     Route: 065
  3. CORTIMENT (HYDROCORTISONE) [Suspect]
     Active Substance: HYDROCORTISONE
     Indication: HAEMATOCHEZIA
     Dosage: UNK
     Route: 065
  4. ENTYVIO [Suspect]
     Active Substance: VEDOLIZUMAB
     Indication: COLITIS ULCERATIVE
     Dosage: 300 MG, UNK
     Route: 042
     Dates: start: 20171017
  5. CORTIFOAM [Concomitant]
     Active Substance: HYDROCORTISONE ACETATE
     Dosage: UNK

REACTIONS (12)
  - Constipation [Unknown]
  - Nasopharyngitis [Unknown]
  - Nasal congestion [None]
  - Sinusitis [Recovered/Resolved]
  - Myalgia [None]
  - Cough [None]
  - Oropharyngeal pain [None]
  - Headache [None]
  - Pyrexia [None]
  - Influenza [Recovered/Resolved]
  - Haematochezia [Recovered/Resolved]
  - Increased upper airway secretion [None]

NARRATIVE: CASE EVENT DATE: 20171120
